FAERS Safety Report 23127740 (Version 1)
Quarter: 2023Q4

REPORT INFORMATION
  Report Type: Spontaneous
  Country: PK (occurrence: PK)
  Receive Date: 20231031
  Receipt Date: 20231031
  Transmission Date: 20240109
  Serious: Yes (Other)
  Sender: FDA-Public Use
  Company Number: PK-PFIZER INC-2020106987

PATIENT
  Age: 27 Year
  Sex: Female

DRUGS (13)
  1. ENBREL [Suspect]
     Active Substance: ETANERCEPT
     Indication: Rheumatoid arthritis
     Dosage: UNK
     Route: 065
     Dates: start: 201909, end: 202011
  2. ENBREL [Suspect]
     Active Substance: ETANERCEPT
     Dosage: 50 MG, WEEKLY
     Route: 058
     Dates: start: 20221001
  3. ENBREL [Suspect]
     Active Substance: ETANERCEPT
     Dosage: 50 MG, EVERY 10TH DAY
     Route: 058
  4. ENBREL [Suspect]
     Active Substance: ETANERCEPT
     Dosage: 50 MG, WEEKLY
     Route: 058
  5. METHOTREXATE [Concomitant]
     Active Substance: METHOTREXATE
     Dosage: INJ 2CC/50MG, 0.8 X CC, ONCE A WEEK
  6. PREDNISOLONE [Concomitant]
     Active Substance: PREDNISOLONE
     Dosage: 1.5 AFTER MEAL. 1 AND A HALF TAB IN MORNING. AFTER MEAL, TAPER LATER
  7. FOLIC ACID [Concomitant]
     Active Substance: FOLIC ACID
     Dosage: 5MG 1 TAB IN MORNING , AFTER MEAL OFF MTX DAY
  8. EVION [Concomitant]
     Active Substance: .ALPHA.-TOCOPHEROL ACETATE
     Dosage: 200 MG 1X CAPSULES, ONCE A DAY. AFTER MEAL
  9. HYDROXYCHLOROQUINE SULFATE [Concomitant]
     Active Substance: HYDROXYCHLOROQUINE SULFATE
     Dosage: 200 MG, 1 TAB IN EVENING AFTER MEAL
  10. Risek [Concomitant]
     Dosage: 20 MG BEFORE MEAL. 1 CAP IN MORNING, BEFORE MEAL FOR 3 WEEKS
  11. Phlogin [Concomitant]
     Dosage: 100 MG 1 CAP AT NIGHT, AFTER MEAL
  12. Sunny d [Concomitant]
     Dosage: 200,000 CAP. 1 X CAPSULES. ONCE IN TWO MONTHS
  13. PANADOL [Concomitant]
     Active Substance: ACETAMINOPHEN
     Dosage: 2X TABLETS, ONCE A DAY, AFTER MEAL, WHEN REQUIRED

REACTIONS (9)
  - Off label use [Unknown]
  - Product use issue [Unknown]
  - White blood cell count increased [Unknown]
  - Alopecia [Unknown]
  - Ocular hyperaemia [Unknown]
  - Musculoskeletal stiffness [Unknown]
  - Dry eye [Unknown]
  - Headache [Unknown]
  - Interstitial lung disease [Unknown]
